FAERS Safety Report 4934117-X (Version None)
Quarter: 2006Q1

REPORT INFORMATION
  Report Type: 
  Country: None (occurrence: None)
  Receive Date: 20060307
  Receipt Date: 20060223
  Transmission Date: 20060701
  Serious: Yes (Hospitalization)
  Sender: FDA-Public Use
  Company Number: SE-BRISTOL-MYERS SQUIBB COMPANY-13301403

PATIENT
  Age: 46 Year
  Sex: Female

DRUGS (5)
  1. HOLOXAN [Suspect]
     Indication: SARCOMA
     Dates: start: 20060214, end: 20060216
  2. BETAPRED [Concomitant]
  3. NAVOBAN [Concomitant]
  4. EMEND [Concomitant]
  5. AMIMOX [Concomitant]

REACTIONS (3)
  - APATHY [None]
  - CONFUSIONAL STATE [None]
  - MUSCLE SPASMS [None]
